FAERS Safety Report 8928921 (Version 3)
Quarter: 2013Q1

REPORT INFORMATION
  Report Type: Spontaneous
  Country: FR (occurrence: FR)
  Receive Date: 20121127
  Receipt Date: 20130318
  Transmission Date: 20140127
  Serious: Yes (Death)
  Sender: FDA-Public Use
  Company Number: FR-B.I. PHARMACEUTICALS,INC./RIDGEFIELD-2012-FF-01681FF

PATIENT
  Age: 83 Year
  Sex: Female
  Weight: 59 kg

DRUGS (5)
  1. PRADAXA [Suspect]
     Indication: ATRIAL FIBRILLATION
     Dosage: 220 MG
     Route: 048
     Dates: start: 20121022, end: 20121101
  2. HEMIGOXINE NATIVELLE [Concomitant]
  3. CHONDROSULF [Concomitant]
  4. TRANSILANE [Concomitant]
  5. SIMVASTATINE [Concomitant]
     Dosage: 20 MG

REACTIONS (1)
  - Cerebral haematoma [Fatal]
